FAERS Safety Report 5307749-7 (Version None)
Quarter: 2007Q2

REPORT INFORMATION
  Report Type: 
  Country: None (occurrence: None)
  Receive Date: 20070418
  Receipt Date: 20070409
  Transmission Date: 20071010
  Serious: Yes (Other)
  Sender: FDA-Public Use
  Company Number: 231105K07USA

PATIENT
  Age: 41 Year
  Sex: Male
  Weight: 97.5234 kg

DRUGS (10)
  1. REBIF [Suspect]
     Indication: MULTIPLE SCLEROSIS
     Dosage: 44 MCG, 3 IN 1 WEEKS, SUBCUTANEOUS
     Route: 058
     Dates: start: 20041021
  2. INTRAVENOUS STEROIDS (CORTICOSTEROID NOS) [Suspect]
     Dosage: INTRAVENOUS (NOT OTHERWISE SPECIFIED)
     Route: 042
  3. LISINOPRIL [Concomitant]
  4. WELLBUTRIN [Concomitant]
  5. DITROPAN (OXYBUTYNIN /00538901/) [Concomitant]
  6. ASPIRIN [Concomitant]
  7. CENTRUM VITAMIN (CENTRUM /00554501/) [Concomitant]
  8. FOLIC ACID [Concomitant]
  9. B-COMPLEX (B-COMPLEX) [Concomitant]
  10. PROVIGIL [Concomitant]

REACTIONS (8)
  - CARDIAC FAILURE [None]
  - COGNITIVE DISORDER [None]
  - CONSTIPATION [None]
  - FATIGUE [None]
  - GASTROINTESTINAL NECROSIS [None]
  - HEADACHE [None]
  - MULTIPLE SCLEROSIS RELAPSE [None]
  - VISION BLURRED [None]
